FAERS Safety Report 19433384 (Version 1)
Quarter: 2021Q2

REPORT INFORMATION
  Report Type: Spontaneous
  Country: US (occurrence: US)
  Receive Date: 20210617
  Receipt Date: 20210617
  Transmission Date: 20210717
  Serious: Yes (Other)
  Sender: FDA-Public Use
  Company Number: US-PFIZER INC-2021659034

PATIENT
  Age: 65 Year
  Sex: Female
  Weight: 55.34 kg

DRUGS (3)
  1. FULVESTRANT. [Concomitant]
     Active Substance: FULVESTRANT
     Dosage: 500 MG 2 INJECTIONS MONTHLY
     Dates: start: 201907
  2. IBRANCE [Suspect]
     Active Substance: PALBOCICLIB
     Indication: BREAST CANCER METASTATIC
     Dosage: 75 MG DAILY FOR 3 WEEKS AND OFF FOR ONE WEEK
     Dates: start: 201907
  3. XGEVA [Concomitant]
     Active Substance: DENOSUMAB
     Indication: BREAST CANCER METASTATIC
     Dosage: 120 MG ONCE MONTHLY INJECTION.
     Dates: start: 201907

REACTIONS (3)
  - Weight increased [Not Recovered/Not Resolved]
  - Joint instability [Unknown]
  - Ligament disorder [Not Recovered/Not Resolved]

NARRATIVE: CASE EVENT DATE: 202005
